FAERS Safety Report 12266178 (Version 1)
Quarter: 2016Q2

REPORT INFORMATION
  Report Type: Spontaneous
  Country: US (occurrence: None)
  Receive Date: 20160413
  Receipt Date: 20160413
  Transmission Date: 20160815
  Serious: Yes (Hospitalization, Disabling, Other)
  Sender: FDA-Public Use
  Company Number: None

PATIENT
  Age: 84 Year
  Sex: Female
  Weight: 86.18 kg

DRUGS (4)
  1. CARVEDILOL. [Concomitant]
     Active Substance: CARVEDILOL
  2. TRIMETHOPRIM (DS 30), 100 MG [Suspect]
     Active Substance: TRIMETHOPRIM
     Indication: URINARY TRACT INFECTION
     Route: 048
     Dates: start: 20160404, end: 20160405
  3. LYRICIA [Concomitant]
  4. COLACE XL [Concomitant]

REACTIONS (7)
  - Joint injury [None]
  - Rib fracture [None]
  - Head injury [None]
  - Asthenia [None]
  - Laceration [None]
  - Contusion [None]
  - Fall [None]

NARRATIVE: CASE EVENT DATE: 20160407
